FAERS Safety Report 9735885 (Version 2)
Quarter: 2013Q4

REPORT INFORMATION
  Report Type: Spontaneous
  Country: US (occurrence: US)
  Receive Date: 20131206
  Receipt Date: 20131206
  Transmission Date: 20140711
  Serious: No
  Sender: FDA-Public Use
  Company Number: US-GILEAD-2009-0024116

PATIENT
  Age: 39 Year
  Sex: Female

DRUGS (9)
  1. LETAIRIS [Suspect]
     Indication: PULMONARY ARTERIAL HYPERTENSION
     Route: 048
     Dates: start: 20090827
  2. SYNTHROID [Concomitant]
  3. PROMETRIUM [Concomitant]
  4. SEROQUEL [Concomitant]
  5. LEXAPRO [Concomitant]
  6. CLONAZEPAM [Concomitant]
  7. INVEGA [Concomitant]
  8. CYTOMEL [Concomitant]
  9. LITHIUM CARBONATE [Concomitant]

REACTIONS (3)
  - Anxiety [Unknown]
  - Feeling jittery [Unknown]
  - Insomnia [Unknown]
